FAERS Safety Report 19899449 (Version 1)
Quarter: 2021Q3

REPORT INFORMATION
  Report Type: Spontaneous
  Country: US (occurrence: US)
  Receive Date: 20210930
  Receipt Date: 20210930
  Transmission Date: 20211014
  Serious: Yes (Life-Threatening, Hospitalization, Other)
  Sender: FDA-Public Use
  Company Number: US-AUROBINDO-AUR-APL-2021-040518

PATIENT
  Age: 12 Month
  Sex: Male

DRUGS (2)
  1. LEVETIRACETAM. [Suspect]
     Active Substance: LEVETIRACETAM
     Indication: STATUS EPILEPTICUS
     Dosage: UNK
     Route: 065
  2. MIDAZOLAM. [Concomitant]
     Active Substance: MIDAZOLAM
     Indication: UNRESPONSIVE TO STIMULI
     Dosage: UNK
     Route: 065

REACTIONS (1)
  - Drug ineffective [Unknown]
